FAERS Safety Report 25806274 (Version 1)
Quarter: 2025Q3

REPORT INFORMATION
  Report Type: Spontaneous
  Country: US (occurrence: None)
  Receive Date: 20250916
  Receipt Date: 20250916
  Transmission Date: 20251021
  Serious: Yes (Other)
  Sender: ADIENNE PHARMA & BIOTECH
  Company Number: US-ADIENNEP-2025AD000702

PATIENT
  Sex: Female

DRUGS (7)
  1. THIOTEPA [Suspect]
     Active Substance: THIOTEPA
     Indication: Autologous haematopoietic stem cell transplant
  2. CARBOPLATIN [Suspect]
     Active Substance: CARBOPLATIN
     Indication: Autologous haematopoietic stem cell transplant
  3. CISPLATIN [Suspect]
     Active Substance: CISPLATIN
     Indication: Chemotherapy
  4. CYCLOPHOSPHAMIDE [Suspect]
     Active Substance: CYCLOPHOSPHAMIDE
     Indication: Chemotherapy
  5. ETOPOSIDE [Suspect]
     Active Substance: ETOPOSIDE
     Indication: Chemotherapy
  6. VINCRISTINE [Suspect]
     Active Substance: VINCRISTINE
     Indication: Chemotherapy
  7. METHOTREXATE [Suspect]
     Active Substance: METHOTREXATE
     Indication: Chemotherapy

REACTIONS (7)
  - Encephalopathy [Unknown]
  - Respiratory symptom [Unknown]
  - Pyrexia [Unknown]
  - Brain oedema [Recovered/Resolved]
  - Human herpesvirus 6 infection reactivation [Unknown]
  - Intellectual disability [Unknown]
  - Epilepsy [Unknown]
